FAERS Safety Report 5190504-9 (Version None)
Quarter: 2006Q4

REPORT INFORMATION
  Report Type: 
  Country: None (occurrence: None)
  Receive Date: 20061222
  Receipt Date: 20061215
  Transmission Date: 20070319
  Serious: Yes (Hospitalization)
  Sender: FDA-Public Use
  Company Number: FR-GLAXOSMITHKLINE-B0450666A

PATIENT
  Age: 91 Year
  Sex: Female
  Weight: 41 kg

DRUGS (1)
  1. ADARTREL [Suspect]
     Route: 048

REACTIONS (4)
  - BLOOD CORTISOL INCREASED [None]
  - C-REACTIVE PROTEIN INCREASED [None]
  - FALL [None]
  - ORTHOSTATIC HYPOTENSION [None]
